FAERS Safety Report 7949838-4 (Version None)
Quarter: 2011Q4

REPORT INFORMATION
  Report Type: 
  Country: None (occurrence: None)
  Receive Date: 20111130
  Receipt Date: 20111124
  Transmission Date: 20120403
  Serious: Yes (Hospitalization, Other)
  Sender: FDA-Public Use
  Company Number: JP-ABBOTT-11P-087-0845557-00

PATIENT
  Sex: Male
  Weight: 54.4 kg

DRUGS (11)
  1. HUMIRA [Suspect]
     Dates: start: 20110404, end: 20110404
  2. CALCITRIOL [Concomitant]
     Indication: PRODUCT USED FOR UNKNOWN INDICATION
     Route: 048
     Dates: start: 20110616
  3. HUMIRA [Suspect]
     Dates: start: 20110418, end: 20110801
  4. ZOLPIDEM TARTRATE [Concomitant]
     Indication: INSOMNIA
     Route: 048
  5. HUMIRA [Suspect]
     Indication: CROHN'S DISEASE
     Route: 058
     Dates: start: 20110214, end: 20110214
  6. MESALAMINE [Concomitant]
     Indication: CROHN'S DISEASE
     Route: 048
  7. PARENTERAL [Concomitant]
     Indication: CROHN'S DISEASE
  8. POTASSIUM L-ASPARTATE [Concomitant]
     Indication: PRODUCT USED FOR UNKNOWN INDICATION
     Route: 048
  9. CLOSTRIDIUM BUTYRICUM [Concomitant]
     Indication: CROHN'S DISEASE
     Route: 048
  10. HUMIRA [Suspect]
     Dates: start: 20110829
  11. OMEPRAZOLE [Concomitant]
     Indication: GASTROINTESTINAL DISORDER
     Route: 048

REACTIONS (5)
  - RED BLOOD CELL COUNT DECREASED [None]
  - PYREXIA [None]
  - HYPOCALCAEMIA [None]
  - PLATELET COUNT DECREASED [None]
  - SHORT-BOWEL SYNDROME [None]
